FAERS Safety Report 11115039 (Version 1)
Quarter: 2015Q2

REPORT INFORMATION
  Report Type: Spontaneous
  Country: US (occurrence: None)
  Receive Date: 20150514
  Receipt Date: 20150514
  Transmission Date: 20150821
  Serious: No
  Sender: FDA-Public Use
  Company Number: None

PATIENT
  Age: 42 Year
  Sex: Female
  Weight: 92.53 kg

DRUGS (5)
  1. METAXALONE. [Suspect]
     Active Substance: METAXALONE
     Indication: MUSCLE DISORDER
     Route: 048
     Dates: start: 20150513, end: 20150513
  2. CITALOPRAM [Concomitant]
     Active Substance: CITALOPRAM HYDROBROMIDE
  3. ADDERALL CARTIA [Concomitant]
  4. METAXALONE. [Suspect]
     Active Substance: METAXALONE
     Indication: BACK PAIN
     Route: 048
     Dates: start: 20150513, end: 20150513
  5. ELMIRON [Concomitant]
     Active Substance: PENTOSAN POLYSULFATE SODIUM

REACTIONS (3)
  - Blood pressure increased [None]
  - Headache [None]
  - Head discomfort [None]

NARRATIVE: CASE EVENT DATE: 20150513
